FAERS Safety Report 9069761 (Version 1)
Quarter: 2013Q1

REPORT INFORMATION
  Report Type: Report from Study
  Country: US (occurrence: US)
  Receive Date: 20130131
  Receipt Date: 20130131
  Transmission Date: 20140127
  Serious: No
  Sender: FDA-Public Use
  Company Number: US-ABBOTT-12P-163-1000423-00

PATIENT
  Age: 29 Year
  Sex: Female

DRUGS (9)
  1. HUMIRA [Suspect]
     Indication: CROHN^S DISEASE
     Route: 058
     Dates: start: 20121010, end: 20121010
  2. HUMIRA [Suspect]
     Route: 058
  3. MORPHINE SULFATE [Concomitant]
     Indication: PAIN
     Dosage: HAS TAKEN UP TO 6 A DAY FOR 3 WEEKS
  4. LIALDA [Concomitant]
     Indication: PRODUCT USED FOR UNKNOWN INDICATION
  5. SINGULAIR [Concomitant]
     Indication: PRODUCT USED FOR UNKNOWN INDICATION
  6. ZYRTEC [Concomitant]
     Indication: PRODUCT USED FOR UNKNOWN INDICATION
  7. NEXIUM [Concomitant]
     Indication: PRODUCT USED FOR UNKNOWN INDICATION
  8. CYMBALTA [Concomitant]
     Indication: PRODUCT USED FOR UNKNOWN INDICATION
  9. MIRENA [Concomitant]
     Indication: PROPHYLAXIS

REACTIONS (2)
  - Loss of consciousness [Recovered/Resolved]
  - Nausea [Unknown]
